FAERS Safety Report 9391185 (Version 1)
Quarter: 2013Q3

REPORT INFORMATION
  Report Type: Spontaneous
  Country: US (occurrence: US)
  Receive Date: 20130709
  Receipt Date: 20130709
  Transmission Date: 20140515
  Serious: No
  Sender: FDA-Public Use
  Company Number: US-TEVA-417046USA

PATIENT
  Age: 38 Year
  Sex: Female
  Weight: 68.1 kg

DRUGS (3)
  1. COPAXONE [Suspect]
     Indication: RELAPSING-REMITTING MULTIPLE SCLEROSIS
  2. ARMOUR THYROID [Suspect]
     Indication: HYPOTHYROIDISM
     Dosage: 60 MILLIGRAM DAILY;
     Route: 048
  3. ERGOCALCIFEROL [Suspect]
     Indication: VITAMIN SUPPLEMENTATION
     Dosage: 7142.8571 IU (INTERNATIONAL UNIT) DAILY;
     Route: 048

REACTIONS (1)
  - Alopecia [Not Recovered/Not Resolved]
